FAERS Safety Report 19238162 (Version 3)
Quarter: 2021Q3

REPORT INFORMATION
  Report Type: Spontaneous
  Country: JP (occurrence: JP)
  Receive Date: 20210510
  Receipt Date: 20210810
  Transmission Date: 20211014
  Serious: Yes (Other)
  Sender: FDA-Public Use
  Company Number: JP-PFIZER INC-2021481721

PATIENT
  Age: 66 Year
  Sex: Female

DRUGS (5)
  1. RANMARK [Concomitant]
     Active Substance: DENOSUMAB
     Dosage: UNK
  2. FASLODEX [Concomitant]
     Active Substance: FULVESTRANT
     Dosage: UNK
  3. IBRANCE [Suspect]
     Active Substance: PALBOCICLIB
     Indication: BREAST CANCER METASTATIC
     Dosage: 125 MG
  4. DENOTAS [Concomitant]
     Active Substance: CALCIUM CARBONATE\CHOLECALCIFEROL\MAGNESIUM CARBONATE
     Dosage: 2 TABLETS, 1X/DAY
  5. IBRANCE [Suspect]
     Active Substance: PALBOCICLIB
     Indication: BREAST CANCER RECURRENT
     Dosage: 100 MG (25MG X 4 TABLETS), 1X/DAY
     Route: 048
     Dates: start: 20210317

REACTIONS (5)
  - Neoplasm progression [Unknown]
  - Alanine aminotransferase increased [Unknown]
  - Epistaxis [Recovered/Resolved]
  - Aspartate aminotransferase increased [Unknown]
  - Hepatic function abnormal [Unknown]
